FAERS Safety Report 9603461 (Version 2)
Quarter: 2013Q4

REPORT INFORMATION
  Report Type: Report from Study
  Country: FR (occurrence: FR)
  Receive Date: 20131007
  Receipt Date: 20131011
  Transmission Date: 20140711
  Serious: Yes (Death)
  Sender: FDA-Public Use
  Company Number: FR-ROCHE-1285515

PATIENT
  Sex: Male

DRUGS (6)
  1. RANIBIZUMAB [Suspect]
     Indication: AGE-RELATED MACULAR DEGENERATION
     Route: 050
     Dates: start: 20081118
  2. RANIBIZUMAB [Suspect]
     Dosage: REGIMEN 2
     Route: 050
     Dates: start: 20090702
  3. RANIBIZUMAB [Suspect]
     Dosage: REGIMEN 3
     Route: 050
     Dates: start: 20091104
  4. RANIBIZUMAB [Suspect]
     Dosage: REGIMEN 4
     Route: 050
     Dates: start: 20100510
  5. RANIBIZUMAB [Suspect]
     Dosage: REGIMEN 5
     Route: 050
     Dates: start: 20110209
  6. RANIBIZUMAB [Suspect]
     Dosage: REGIMEN 6
     Route: 050
     Dates: start: 20120604

REACTIONS (2)
  - Death [Fatal]
  - General physical health deterioration [Fatal]
